FAERS Safety Report 4599119-4 (Version None)
Quarter: 2005Q1

REPORT INFORMATION
  Report Type: 
  Country: None (occurrence: None)
  Receive Date: 20050302
  Receipt Date: 20050221
  Transmission Date: 20050727
  Serious: Yes (Other)
  Sender: FDA-Public Use
  Company Number: 2005-02-1455

PATIENT
  Age: 76 Year
  Sex: Female

DRUGS (6)
  1. IMDUR [Suspect]
     Indication: PAIN
     Dosage: 30 MG/D ORAL
     Route: 048
     Dates: start: 20041207, end: 20041207
  2. IMDUR [Suspect]
     Indication: PAIN
     Dosage: 30 MG/D ORAL
     Route: 048
     Dates: start: 20041220, end: 20041220
  3. IMDUR [Suspect]
     Indication: PAIN
     Dosage: 30 MG/D ORAL
     Route: 048
     Dates: start: 20050114, end: 20050114
  4. COLOFAC [Concomitant]
  5. IBUPROFEN [Concomitant]
  6. VALSARTAN [Concomitant]

REACTIONS (5)
  - BALANCE DISORDER [None]
  - DYSPHAGIA [None]
  - HALLUCINATION [None]
  - HEADACHE [None]
  - MENTAL DISORDER [None]
